FAERS Safety Report 9363561 (Version 1)
Quarter: 2013Q2

REPORT INFORMATION
  Report Type: Spontaneous
  Country: RU (occurrence: None)
  Receive Date: 20130618
  Receipt Date: 20130618
  Transmission Date: 20140414
  Serious: Yes (Other)
  Sender: FDA-Public Use
  Company Number: RU-1198649

PATIENT
  Sex: Female

DRUGS (2)
  1. ALCAINE [Suspect]
     Route: 047
     Dates: start: 201304, end: 20130427
  2. SULFACETAMID [Concomitant]

REACTIONS (2)
  - Keratopathy [None]
  - Visual acuity reduced transiently [None]
